FAERS Safety Report 6549003-1 (Version None)
Quarter: 2010Q1

REPORT INFORMATION
  Report Type: 
  Country: None (occurrence: None)
  Receive Date: 20100125
  Receipt Date: 20100118
  Transmission Date: 20100710
  Serious: Yes (Life-Threatening, Hospitalization)
  Sender: FDA-Public Use
  Company Number: -ORACLE-2010S1000030

PATIENT
  Age: 36 Year
  Sex: Female
  Weight: 46.3 kg

DRUGS (1)
  1. CUBICIN [Suspect]
     Indication: STAPHYLOCOCCAL ABSCESS
     Route: 042
     Dates: start: 20100114, end: 20100114

REACTIONS (1)
  - ANAPHYLACTIC SHOCK [None]
